FAERS Safety Report 16230535 (Version 1)
Quarter: 2019Q2

REPORT INFORMATION
  Report Type: Spontaneous
  Country: US (occurrence: US)
  Receive Date: 20190423
  Receipt Date: 20190423
  Transmission Date: 20190711
  Serious: Yes (Other)
  Sender: FDA-Public Use
  Company Number: US-009507513-1904USA009960

PATIENT
  Age: 51 Year
  Sex: Female

DRUGS (4)
  1. ROCURONIUM BROMIDE. [Suspect]
     Active Substance: ROCURONIUM BROMIDE
     Indication: BREAST CONSERVING SURGERY
     Dosage: UNK
     Dates: start: 20190306, end: 20190306
  2. BRIDION [Suspect]
     Active Substance: SUGAMMADEX
     Indication: NEUROMUSCULAR BLOCKADE REVERSAL
     Dosage: UNK
     Route: 042
     Dates: start: 20190306, end: 20190306
  3. FENTANYL. [Suspect]
     Active Substance: FENTANYL
     Indication: BREAST CONSERVING SURGERY
     Dosage: UNK
     Dates: start: 20190306, end: 20190306
  4. PROPOFOL. [Suspect]
     Active Substance: PROPOFOL
     Indication: BREAST CONSERVING SURGERY
     Dosage: UNK
     Dates: start: 20190306, end: 20190306

REACTIONS (1)
  - Anaphylactoid reaction [Recovered/Resolved]

NARRATIVE: CASE EVENT DATE: 20190306
